FAERS Safety Report 5004061-0 (Version None)
Quarter: 2006Q2

REPORT INFORMATION
  Report Type: 
  Country: None (occurrence: None)
  Receive Date: 20060515
  Receipt Date: 20060515
  Transmission Date: 20061013
  Serious: No
  Sender: FDA-Public Use
  Company Number: None

PATIENT
  Age: 41 Year
  Sex: Male
  Weight: 95.2554 kg

DRUGS (2)
  1. LEVAQUIN [Suspect]
     Indication: EPIDIDYMITIS
     Dosage: 20 DAYS WORTH   QD   PO
     Route: 048
     Dates: start: 20050515, end: 20050525
  2. LEVAQUIN [Suspect]
     Indication: EPIDIDYMITIS
     Dosage: 20 DAYS WORTH   QD   PO
     Route: 048
     Dates: start: 20050812, end: 20050822

REACTIONS (14)
  - BALANCE DISORDER [None]
  - BURNING SENSATION [None]
  - DEPRESSION [None]
  - ENCEPHALOPATHY [None]
  - HYPERACUSIS [None]
  - INSOMNIA [None]
  - INTRACRANIAL PRESSURE INCREASED [None]
  - NERVE INJURY [None]
  - NERVOUS SYSTEM DISORDER [None]
  - PANIC ATTACK [None]
  - TENDON DISORDER [None]
  - TINNITUS [None]
  - TREMOR [None]
  - VITREOUS FLOATERS [None]
